FAERS Safety Report 13454265 (Version 1)
Quarter: 2017Q2

REPORT INFORMATION
  Report Type: Spontaneous
  Country: US (occurrence: US)
  Receive Date: 20170418
  Receipt Date: 20170418
  Transmission Date: 20170830
  Serious: No
  Sender: FDA-Public Use
  Company Number: US-ALLERGAN-1668936US

PATIENT
  Age: 71 Year
  Sex: Female
  Weight: 53.97 kg

DRUGS (3)
  1. LATISSE [Suspect]
     Active Substance: BIMATOPROST
     Indication: GROWTH OF EYELASHES
     Dosage: 1 GTT, BID
     Route: 061
     Dates: start: 2013, end: 2016
  2. LATISSE [Suspect]
     Active Substance: BIMATOPROST
     Dosage: 1 GTT, PRN
     Route: 061
     Dates: start: 2013, end: 2016
  3. NEURONTIN [Concomitant]
     Active Substance: GABAPENTIN
     Indication: SCIATICA
     Dosage: UNK
     Route: 048
     Dates: start: 2015

REACTIONS (5)
  - Trichiasis [Not Recovered/Not Resolved]
  - Inappropriate schedule of drug administration [Unknown]
  - Off label use [Unknown]
  - Madarosis [Not Recovered/Not Resolved]
  - Drug ineffective [Unknown]

NARRATIVE: CASE EVENT DATE: 201609
